FAERS Safety Report 7069844-4 (Version None)
Quarter: 2010Q4

REPORT INFORMATION
  Report Type: 
  Country: None (occurrence: None)
  Receive Date: 20101028
  Receipt Date: 20100626
  Transmission Date: 20110411
  Serious: No
  Sender: FDA-Public Use
  Company Number: US-WYE-H15902610

PATIENT
  Sex: Female
  Weight: 99.88 kg

DRUGS (5)
  1. EFFEXOR [Suspect]
     Indication: FIBROMYALGIA
     Dosage: UNKNOWN
     Route: 048
  2. PRILOSEC [Suspect]
     Indication: GASTROOESOPHAGEAL REFLUX DISEASE
     Dosage: UNKNOWN
     Route: 048
  3. REGLAN [Suspect]
     Indication: GASTROOESOPHAGEAL REFLUX DISEASE
     Dosage: UNKNOWN
     Route: 048
  4. LYRICA [Suspect]
     Indication: FIBROMYALGIA
     Dosage: UNKNOWN
     Dates: start: 20080101, end: 20080101
  5. GABAPENTIN [Suspect]
     Indication: FIBROMYALGIA
     Dosage: UNKNOWN
     Route: 048

REACTIONS (4)
  - DYSPHONIA [None]
  - PARKINSONISM [None]
  - TREMOR [None]
  - UNEVALUABLE EVENT [None]
